FAERS Safety Report 24357407 (Version 1)
Quarter: 2024Q3

REPORT INFORMATION
  Report Type: Spontaneous
  Country: AU (occurrence: AU)
  Receive Date: 20240924
  Receipt Date: 20240924
  Transmission Date: 20241017
  Serious: Yes (Other)
  Sender: CHEPLAPHARM
  Company Number: AU-CHEPLA-2024011937

PATIENT
  Age: 38 Year
  Sex: Female

DRUGS (2)
  1. OLANZAPINE PAMOATE [Suspect]
     Active Substance: OLANZAPINE PAMOATE
     Indication: Product used for unknown indication
  2. DROPERIDOL [Suspect]
     Active Substance: DROPERIDOL
     Indication: Product used for unknown indication

REACTIONS (10)
  - Abortion spontaneous [Unknown]
  - Tardive dyskinesia [Unknown]
  - Exposure during pregnancy [Recovered/Resolved]
  - Malaise [Unknown]
  - Muscle spasms [Unknown]
  - Amenorrhoea [Unknown]
  - Blood prolactin increased [Unknown]
  - Breast enlargement [Unknown]
  - Dizziness [Unknown]
  - Tremor [Unknown]
